FAERS Safety Report 10184975 (Version 1)
Quarter: 2014Q2

REPORT INFORMATION
  Report Type: Spontaneous
  Country: US (occurrence: None)
  Receive Date: 20140520
  Receipt Date: 20140520
  Transmission Date: 20141212
  Serious: Yes (Disabling)
  Sender: FDA-Public Use
  Company Number: None

PATIENT
  Age: 62 Year
  Sex: Female
  Weight: 95.26 kg

DRUGS (1)
  1. AMLODIPINE BENAZEPRIL [Suspect]
     Indication: HYPERTENSION
     Dates: start: 20070131, end: 20140422

REACTIONS (4)
  - Joint stiffness [None]
  - Joint stiffness [None]
  - Joint stiffness [None]
  - Gait disturbance [None]
